FAERS Safety Report 10009540 (Version 2)
Quarter: 2014Q1

REPORT INFORMATION
  Report Type: Spontaneous
  Country: US (occurrence: US)
  Receive Date: 20140312
  Receipt Date: 20140312
  Transmission Date: 20141002
  Serious: No
  Sender: FDA-Public Use
  Company Number: US-INCYTE CORPORATION-2012IN001673

PATIENT
  Sex: 0

DRUGS (6)
  1. JAKAFI [Suspect]
     Indication: MYELOFIBROSIS
     Dosage: 15 MG, BID
     Route: 048
     Dates: start: 20120408
  2. JAKAFI [Suspect]
     Indication: POLYCYTHAEMIA VERA
  3. FLECAINIDE [Concomitant]
     Dosage: 50 MG, BID
  4. NEXIUM [Concomitant]
     Dosage: 40 MG, QD
  5. ASPIRIN [Concomitant]
     Dosage: 325 MG, QD
  6. XANAX [Concomitant]
     Dosage: 0.5 MG, TID

REACTIONS (4)
  - Abdominal distension [Unknown]
  - Fatigue [Not Recovered/Not Resolved]
  - Memory impairment [Not Recovered/Not Resolved]
  - Balance disorder [Unknown]
